FAERS Safety Report 10086732 (Version 2)
Quarter: 2014Q2

REPORT INFORMATION
  Report Type: Spontaneous
  Country: US (occurrence: US)
  Receive Date: 20140418
  Receipt Date: 20140506
  Transmission Date: 20141212
  Serious: Yes (Hospitalization)
  Sender: FDA-Public Use
  Company Number: US-JNJFOC-20140409697

PATIENT
  Age: 56 Year
  Sex: Male
  Weight: 108.86 kg

DRUGS (8)
  1. INVOKANA [Suspect]
     Indication: TYPE 2 DIABETES MELLITUS
     Route: 048
     Dates: start: 20140402, end: 20140410
  2. LANTUS [Concomitant]
     Indication: DIABETES MELLITUS
  3. CIPROFLOXACIN [Concomitant]
     Indication: SINUSITIS
     Dates: start: 20140407, end: 20140414
  4. CIPROFLOXACIN [Concomitant]
     Indication: EAR INFECTION
     Dates: start: 20140407, end: 20140414
  5. CIPRODEX [Concomitant]
     Indication: EAR INFECTION
     Dates: start: 20140407, end: 20140414
  6. OCUFLOX [Concomitant]
     Indication: CONJUNCTIVITIS
     Dates: start: 20140407, end: 201404
  7. LEVITRA [Concomitant]
     Indication: ERECTILE DYSFUNCTION
     Dates: start: 20140402
  8. VIAGRA [Concomitant]
     Indication: ERECTILE DYSFUNCTION
     Dates: start: 20140402

REACTIONS (9)
  - Renal failure acute [Recovering/Resolving]
  - Dehydration [Recovering/Resolving]
  - Ear infection [Unknown]
  - Malaise [Unknown]
  - Oropharyngeal pain [Unknown]
  - Sinus congestion [Unknown]
  - Eye infection [Unknown]
  - Hypotension [Unknown]
  - Weight decreased [Unknown]
